FAERS Safety Report 4692074-8 (Version None)
Quarter: 2005Q2

REPORT INFORMATION
  Report Type: 
  Country: None (occurrence: None)
  Receive Date: 20050616
  Receipt Date: 20050616
  Transmission Date: 20051028
  Serious: Yes (Hospitalization)
  Sender: FDA-Public Use
  Company Number: None

PATIENT
  Sex: Male

DRUGS (10)
  1. IRESSA [Suspect]
     Indication: RENAL CELL CARCINOMA STAGE UNSPECIFIED
     Dosage: 250 MG PO DAILY
     Route: 048
     Dates: start: 20050523
  2. PEGYLATED INTERFERON ALPHA 2B [Suspect]
     Indication: RENAL CELL CARCINOMA STAGE UNSPECIFIED
     Dosage: 6 MG/ KG SQ ONCE A WEEK
     Route: 058
     Dates: start: 20050523
  3. PRAVACHOL [Concomitant]
  4. FLOMAX [Concomitant]
  5. QUININE SULFATE [Concomitant]
  6. THEOPHYLLINE [Concomitant]
  7. LASIX [Concomitant]
  8. ALBUTEROL [Concomitant]
  9. COUMADIN [Concomitant]
  10. KLOR-CON [Concomitant]

REACTIONS (6)
  - ANXIETY [None]
  - ASTHENIA [None]
  - CONFUSIONAL STATE [None]
  - HYPOTENSION [None]
  - MOBILITY DECREASED [None]
  - ORAL INTAKE REDUCED [None]
